FAERS Safety Report 19454334 (Version 1)
Quarter: 2021Q2

REPORT INFORMATION
  Report Type: Spontaneous
  Country: US (occurrence: US)
  Receive Date: 20210623
  Receipt Date: 20210623
  Transmission Date: 20210717
  Serious: Yes (Other)
  Sender: FDA-Public Use
  Company Number: US-AMGEN-USASP2021093848

PATIENT

DRUGS (3)
  1. PALBOCICLIB [Concomitant]
     Active Substance: PALBOCICLIB
     Dosage: 75 MILLIGRAM, QD, 3 WEEKS ON AND 1 WEEK OFF
     Route: 048
  2. TRAMETINIB [Concomitant]
     Active Substance: TRAMETINIB
     Dosage: 1 MILLIGRAM, QD
     Route: 048
  3. BEVACIZUMAB. [Suspect]
     Active Substance: BEVACIZUMAB
     Indication: ADENOCARCINOMA PANCREAS
     Dosage: UNK
     Route: 065

REACTIONS (1)
  - Pancreatic carcinoma metastatic [Unknown]
